FAERS Safety Report 24610627 (Version 1)
Quarter: 2024Q4

REPORT INFORMATION
  Report Type: Spontaneous
  Country: US (occurrence: US)
  Receive Date: 20241112
  Receipt Date: 20241112
  Transmission Date: 20250114
  Serious: Yes (Other)
  Sender: ETHYPHARM
  Company Number: US-ETHYPHARM-2024002976

PATIENT

DRUGS (3)
  1. BUPRENORPHINE HYDROCHLORIDE\NALOXONE HYDROCHLORIDE [Suspect]
     Active Substance: BUPRENORPHINE HYDROCHLORIDE\NALOXONE HYDROCHLORIDE
     Indication: Substance use disorder
     Dosage: UP TO 8 MG DAILY
     Route: 060
     Dates: start: 202211, end: 202212
  2. BUPRENORPHINE HYDROCHLORIDE\NALOXONE HYDROCHLORIDE [Suspect]
     Active Substance: BUPRENORPHINE HYDROCHLORIDE\NALOXONE HYDROCHLORIDE
     Indication: Substance use disorder
     Dosage: SELF-TITRATED
     Route: 060
     Dates: start: 202212, end: 2023
  3. BUPRENORPHINE HYDROCHLORIDE\NALOXONE HYDROCHLORIDE [Suspect]
     Active Substance: BUPRENORPHINE HYDROCHLORIDE\NALOXONE HYDROCHLORIDE
     Indication: Substance use disorder
     Dosage: LESS THAN 4 MG
     Route: 060
     Dates: start: 2023

REACTIONS (5)
  - Drug dependence [Recovered/Resolved]
  - Drug withdrawal syndrome [Recovered/Resolved]
  - Off label use [Recovered/Resolved]
  - Drug effective for unapproved indication [Recovered/Resolved]
  - Intentional product misuse [Recovered/Resolved]

NARRATIVE: CASE EVENT DATE: 20221101
